FAERS Safety Report 5715811-X (Version None)
Quarter: 2008Q2

REPORT INFORMATION
  Report Type: 
  Country: None (occurrence: None)
  Receive Date: 20080424
  Receipt Date: 20080414
  Transmission Date: 20081010
  Serious: Yes (Other)
  Sender: FDA-Public Use
  Company Number: US-ABBOTT-08P-163-0444758-00

PATIENT
  Sex: Female
  Weight: 74.91 kg

DRUGS (14)
  1. DEPAKOTE ER TABS [Suspect]
     Indication: BIPOLAR DISORDER
     Route: 048
     Dates: start: 20000101
  2. DEPAKOTE ER TABS [Suspect]
     Indication: EPILEPSY
  3. TOPIRAMATE [Interacting]
     Indication: DRUG USE FOR UNKNOWN INDICATION
     Route: 048
  4. TOPIRAMATE [Interacting]
     Route: 048
  5. TOPIRAMATE [Interacting]
     Route: 048
  6. ALPRAZOLAM [Concomitant]
     Indication: ANXIETY
     Route: 048
     Dates: start: 20070101
  7. LITHIUM CARBONATE [Concomitant]
     Indication: BIPOLAR DISORDER
     Route: 048
     Dates: start: 19880101
  8. ACETYLSALICYLIC ACID SRT [Concomitant]
     Indication: CARDIOVASCULAR EVENT PROPHYLAXIS
     Route: 048
     Dates: start: 20060101
  9. CLOPIDOGREL [Concomitant]
     Indication: THROMBOSIS PROPHYLAXIS
     Route: 048
     Dates: start: 20060101
  10. INEGY [Concomitant]
     Indication: BLOOD CHOLESTEROL
     Route: 048
     Dates: start: 20070101
  11. FLUTICASONE PROPIONATE [Concomitant]
     Indication: HYPERSENSITIVITY
     Dates: start: 20080301
  12. LEVOTHYROXINE SODIUM [Concomitant]
     Indication: DEPRESSION
     Route: 048
     Dates: start: 19920101
  13. NABUMETONE [Concomitant]
     Indication: BACK PAIN
     Route: 048
     Dates: start: 20070101
  14. INDURAL [Concomitant]
     Indication: CARDIOVASCULAR EVENT PROPHYLAXIS
     Route: 048
     Dates: start: 20060101

REACTIONS (16)
  - ANOREXIA [None]
  - BALANCE DISORDER [None]
  - CONSTIPATION [None]
  - COUGH [None]
  - DIARRHOEA [None]
  - DIPLOPIA [None]
  - DIZZINESS [None]
  - DRUG INTERACTION [None]
  - DYSPHASIA [None]
  - FALL [None]
  - MENTAL IMPAIRMENT [None]
  - MYOCARDIAL INFARCTION [None]
  - RHINORRHOEA [None]
  - SOMNOLENCE [None]
  - SUICIDAL IDEATION [None]
  - TREMOR [None]
